FAERS Safety Report 5237754-0 (Version None)
Quarter: 2007Q1

REPORT INFORMATION
  Report Type: 
  Country: None (occurrence: None)
  Receive Date: 20070214
  Receipt Date: 20070213
  Transmission Date: 20070707
  Serious: Yes (Disabling, Congenital Anomaly)
  Sender: FDA-Public Use
  Company Number: US-GLAXOSMITHKLINE-A0639383A

PATIENT
  Sex: Female

DRUGS (1)
  1. PAXIL [Suspect]
     Indication: DRUG USE FOR UNKNOWN INDICATION

REACTIONS (9)
  - CONGENITAL HAIR DISORDER [None]
  - CONGENITAL HEART VALVE DISORDER [None]
  - DEFORMITY THORAX [None]
  - DRUG EXPOSURE DURING PREGNANCY [None]
  - EMOTIONAL DISTRESS [None]
  - MULTIPLE CONGENITAL ABNORMALITIES [None]
  - PAIN [None]
  - PTERYGIUM COLLI [None]
  - VENTRICULAR SEPTAL DEFECT [None]
